FAERS Safety Report 24301911 (Version 1)
Quarter: 2024Q3

REPORT INFORMATION
  Report Type: Spontaneous
  Country: US (occurrence: US)
  Receive Date: 20240910
  Receipt Date: 20240910
  Transmission Date: 20241016
  Serious: No
  Sender: SANDOZ
  Company Number: US-002147023-NVSC2023US208137

PATIENT
  Age: 68 Year
  Sex: Female

DRUGS (1)
  1. RECLAST [Suspect]
     Active Substance: ZOLEDRONIC ACID
     Indication: Product used for unknown indication
     Dosage: UNK
     Route: 065
     Dates: start: 20230915

REACTIONS (4)
  - Eye irritation [Unknown]
  - Headache [Not Recovered/Not Resolved]
  - Bone pain [Unknown]
  - Chills [Unknown]

NARRATIVE: CASE EVENT DATE: 20230915
